FAERS Safety Report 9225315 (Version 2)
Quarter: 2013Q2

REPORT INFORMATION
  Report Type: Spontaneous
  Country: US (occurrence: US)
  Receive Date: 20130411
  Receipt Date: 20130424
  Transmission Date: 20140414
  Serious: No
  Sender: FDA-Public Use
  Company Number: US-009507513-1304USA003343

PATIENT
  Age: 24 Year
  Sex: Female
  Weight: 53.52 kg

DRUGS (1)
  1. NEXPLANON [Suspect]
     Indication: CONTRACEPTION
     Dosage: 68 MG, UNK
     Route: 059
     Dates: start: 20130104, end: 201304

REACTIONS (4)
  - Furuncle [Recovered/Resolved]
  - Impaired healing [Recovered/Resolved]
  - Implant site pain [Recovered/Resolved]
  - Metrorrhagia [Recovered/Resolved]
